FAERS Safety Report 24542083 (Version 4)
Quarter: 2025Q1

REPORT INFORMATION
  Report Type: Spontaneous
  Country: US (occurrence: US)
  Receive Date: 20241023
  Receipt Date: 20250220
  Transmission Date: 20250408
  Serious: Yes (Other)
  Sender: BRISTOL-MYERS SQUIBB COMPANY
  Company Number: US-BRISTOL-MYERS SQUIBB COMPANY-2024-167064

PATIENT
  Age: 74 Year
  Sex: Male
  Weight: 104.78 kg

DRUGS (1)
  1. POMALYST [Suspect]
     Active Substance: POMALIDOMIDE
     Indication: Plasma cell myeloma
     Dosage: ONCE DAILY FOR 21 DAYS ON THEN 7 DAYS OFF. 3 WEEKS ON 1 WEEK OFF
     Route: 048
     Dates: start: 202301

REACTIONS (3)
  - Hypertension [Unknown]
  - Lower respiratory tract infection [Recovering/Resolving]
  - Neuropathy peripheral [Not Recovered/Not Resolved]
